FAERS Safety Report 9954078 (Version 2)
Quarter: 2014Q2

REPORT INFORMATION
  Report Type: Spontaneous
  Country: US (occurrence: US)
  Receive Date: 20140304
  Receipt Date: 20140414
  Transmission Date: 20141212
  Serious: No
  Sender: FDA-Public Use
  Company Number: US-VERTEX PHARMACEUTICALS INC-2014-001070

PATIENT
  Age: 55 Year
  Sex: Male
  Weight: 95 kg

DRUGS (4)
  1. INCIVEK [Suspect]
     Indication: HEPATITIS C
     Dosage: 750 MG, TID
     Route: 048
     Dates: start: 20140117, end: 201402
  2. INCIVEK [Suspect]
     Dosage: 1125 MG, BID
     Route: 048
     Dates: end: 20140225
  3. RIBAVIRIN [Suspect]
     Indication: HEPATITIS C
     Dosage: 4 IN AM, 3 IN PM
     Dates: start: 20140117, end: 20140225
  4. PEGASYS [Suspect]
     Indication: HEPATITIS C
     Dosage: 180 ?G, QW
     Route: 058
     Dates: start: 20140117, end: 20140225

REACTIONS (5)
  - Depression [Unknown]
  - Anger [Unknown]
  - Weight increased [Unknown]
  - Anaemia [Recovering/Resolving]
  - Drug ineffective [Unknown]
